FAERS Safety Report 18639629 (Version 1)
Quarter: 2020Q4

REPORT INFORMATION
  Report Type: Spontaneous
  Country: JP (occurrence: JP)
  Receive Date: 20201220
  Receipt Date: 20201220
  Transmission Date: 20210114
  Serious: Yes (Other)
  Sender: FDA-Public Use
  Company Number: JP-LUPIN PHARMACEUTICALS INC.-2020-07294

PATIENT
  Age: 5 Month
  Sex: Male

DRUGS (11)
  1. METHYLPHENIDATE HYDROCHLORIDE. [Suspect]
     Active Substance: METHYLPHENIDATE HYDROCHLORIDE
     Indication: LENNOX-GASTAUT SYNDROME
     Dosage: UNK
     Route: 065
  2. LEVOMEPROMAZINE MALEATE [Suspect]
     Active Substance: LEVOMEPROMAZINE MALEATE
     Indication: LENNOX-GASTAUT SYNDROME
     Dosage: UNK
     Route: 065
  3. ZONISAMIDE. [Suspect]
     Active Substance: ZONISAMIDE
     Indication: INFANTILE SPASMS
     Dosage: UNK
     Route: 065
  4. ARIPIPRAZOLE. [Suspect]
     Active Substance: ARIPIPRAZOLE
     Indication: LENNOX-GASTAUT SYNDROME
     Dosage: UNK
     Route: 065
  5. CLONAZEPAM. [Suspect]
     Active Substance: CLONAZEPAM
     Indication: INFANTILE SPASMS
     Dosage: UNK
     Route: 065
  6. THIORIDAZINE HYDROCHLORIDE. [Suspect]
     Active Substance: THIORIDAZINE HYDROCHLORIDE
     Indication: LENNOX-GASTAUT SYNDROME
     Dosage: UNK
     Route: 065
  7. ETHOSUXIMIDE. [Suspect]
     Active Substance: ETHOSUXIMIDE
     Indication: INFANTILE SPASMS
     Dosage: UNK
     Route: 065
  8. RISPERIDONE. [Suspect]
     Active Substance: RISPERIDONE
     Indication: LENNOX-GASTAUT SYNDROME
     Dosage: UNK
     Route: 065
  9. PYRIDOXAL PHOSPHATE [Suspect]
     Active Substance: PYRIDOXAL PHOSPHATE
     Indication: INFANTILE SPASMS
     Dosage: UNK
     Route: 065
  10. CORTROSYN Z [TETRACOSACTIDE ACETATE] [Concomitant]
     Indication: INFANTILE SPASMS
     Dosage: 0.012 MILLIGRAM/KILOGRAM, QD
     Route: 065
  11. SODIUM VALPROATE [Suspect]
     Active Substance: VALPROATE SODIUM
     Indication: INFANTILE SPASMS
     Dosage: UNK
     Route: 065

REACTIONS (1)
  - Drug ineffective [Unknown]
